FAERS Safety Report 8887213 (Version 2)
Quarter: 2012Q4

REPORT INFORMATION
  Report Type: 
  Country: US (occurrence: US)
  Receive Date: 20121105
  Receipt Date: 20121206
  Transmission Date: 20130627
  Serious: Yes (Hospitalization)
  Sender: FDA-Public Use
  Company Number: US-GILEAD-2012-0064002

PATIENT
  Age: 56 Year
  Sex: Male

DRUGS (3)
  1. LETAIRIS [Suspect]
     Indication: PULMONARY ARTERIAL HYPERTENSION
     Dosage: 10 mg, QD
     Route: 048
     Dates: start: 20120105
  2. LETAIRIS [Suspect]
     Indication: PULMONARY ARTERIAL HYPERTENSION
  3. ADCIRCA [Concomitant]
     Dosage: 40 mg, QD
     Dates: start: 20121029

REACTIONS (5)
  - Pulmonary arterial hypertension [Unknown]
  - Rash [Unknown]
  - Pruritus [Unknown]
  - Pigmentation disorder [Unknown]
  - Skin disorder [Unknown]
